FAERS Safety Report 23702040 (Version 1)
Quarter: 2024Q2

REPORT INFORMATION
  Report Type: Spontaneous
  Country: JP (occurrence: None)
  Receive Date: 20240403
  Receipt Date: 20240403
  Transmission Date: 20240716
  Serious: Yes (Other)
  Sender: FDA-Public Use
  Company Number: 2024A076425

PATIENT
  Age: 53 Year
  Sex: Male

DRUGS (1)
  1. CRESTOR [Suspect]
     Active Substance: ROSUVASTATIN CALCIUM
     Dosage: DOSE UNKNOWN
     Route: 048

REACTIONS (9)
  - Hepatic steatosis [Unknown]
  - Non-alcoholic steatohepatitis [Unknown]
  - Weight increased [Unknown]
  - Malaise [Unknown]
  - Abdominal pain [Unknown]
  - Blood glucose increased [Unknown]
  - Blood triglycerides increased [Unknown]
  - Obesity [Unknown]
  - Glycosylated haemoglobin increased [Recovered/Resolved]
